FAERS Safety Report 9080514 (Version 1)
Quarter: 2013Q1

REPORT INFORMATION
  Report Type: Spontaneous
  Country: US (occurrence: US)
  Receive Date: 20130218
  Receipt Date: 20130218
  Transmission Date: 20140127
  Serious: No
  Sender: FDA-Public Use
  Company Number: US-MYLANLABS-2012S1001361

PATIENT
  Sex: Female

DRUGS (1)
  1. TOLAZAMIDE [Suspect]
     Route: 048
     Dates: start: 20120112, end: 20120113

REACTIONS (1)
  - Urine odour abnormal [Recovered/Resolved]
